FAERS Safety Report 18965117 (Version 2)
Quarter: 2021Q2

REPORT INFORMATION
  Report Type: Spontaneous
  Country: JP (occurrence: JP)
  Receive Date: 20210303
  Receipt Date: 20210420
  Transmission Date: 20210717
  Serious: Yes (Hospitalization, Other)
  Sender: FDA-Public Use
  Company Number: JP-PFIZER INC-2021203390

PATIENT
  Age: 72 Year
  Sex: Male
  Weight: 63 kg

DRUGS (6)
  1. PERSANTIN [Concomitant]
     Active Substance: DIPYRIDAMOLE
     Dosage: 100 MG, 1X/DAY
     Route: 048
  2. NEXIUM [Concomitant]
     Active Substance: ESOMEPRAZOLE MAGNESIUM
     Dosage: 20 MG, 1X/DAY
     Route: 048
  3. FEBURIC [Concomitant]
     Active Substance: FEBUXOSTAT
     Dosage: 10 MG, 1X/DAY
     Route: 048
  4. LEUCOVORIN [FOLINIC ACID] [Concomitant]
     Active Substance: LEUCOVORIN
     Dosage: 5 MG, WEEKLY
     Route: 048
     Dates: end: 20210225
  5. AMLODIPINE BESILATE [Concomitant]
     Active Substance: AMLODIPINE BESYLATE
     Dosage: 5 MG, 1X/DAY
     Route: 048
  6. RHEUMATREX [Suspect]
     Active Substance: METHOTREXATE SODIUM
     Indication: RHEUMATOID ARTHRITIS
     Dosage: 10 MG, WEEKLY (4 MG TWICE A DAY ON WEDNESDAY, 2 MG ONCE A DAY ON THURSDAY)
     Route: 048
     Dates: end: 20210225

REACTIONS (5)
  - Ascites [Recovering/Resolving]
  - Proteinuria [Unknown]
  - Hypoalbuminaemia [Unknown]
  - Generalised oedema [Recovering/Resolving]
  - Weight increased [Recovering/Resolving]

NARRATIVE: CASE EVENT DATE: 20210224
